FAERS Safety Report 8102783-6 (Version None)
Quarter: 2012Q1

REPORT INFORMATION
  Report Type: 
  Country: None (occurrence: None)
  Receive Date: 20120126
  Receipt Date: 20120119
  Transmission Date: 20120608
  Serious: Yes (Death)
  Sender: FDA-Public Use
  Company Number: 2011SP052648

PATIENT
  Age: 61 Year
  Sex: Male

DRUGS (2)
  1. REBETOL [Suspect]
     Indication: HEPATITIS C
     Dosage: PO
     Route: 048
  2. PEG-INTRON [Suspect]
     Indication: HEPATITIS C
     Dosage: SC
     Route: 058

REACTIONS (1)
  - HEPATIC NEOPLASM MALIGNANT [None]
